FAERS Safety Report 8556914-4 (Version None)
Quarter: 2012Q3

REPORT INFORMATION
  Report Type: 
  Country: None (occurrence: None)
  Receive Date: 20120801
  Receipt Date: 20120725
  Transmission Date: 20120928
  Serious: Yes (Hospitalization)
  Sender: FDA-Public Use
  Company Number: US-AMGEN-USASP2011000771

PATIENT
  Age: 91 Year
  Sex: Female
  Weight: 49.887 kg

DRUGS (10)
  1. DIURETIC                           /00022001/ [Concomitant]
     Dosage: UNK
     Route: 048
     Dates: start: 20000101
  2. HYDRALAZINE HCL [Concomitant]
     Indication: CARDIAC FAILURE CHRONIC
     Dosage: 100 UNK, UNK
     Dates: start: 20110826
  3. AMLODIPINE [Concomitant]
     Indication: HYPERTENSION
     Dosage: UNK
     Route: 048
     Dates: start: 20110811
  4. CALCIUM [Concomitant]
     Dosage: UNK
     Dates: start: 20000101
  5. ANTIHYPERTENSIVES [Concomitant]
     Dosage: UNK
     Dates: start: 20000101
  6. POTASSIUM [Concomitant]
     Dosage: UNK
     Dates: start: 20000101
  7. LASIX [Concomitant]
     Indication: CARDIAC FAILURE CHRONIC
     Dosage: UNK UNK, QD
     Route: 048
     Dates: start: 20110826
  8. PROCRIT [Suspect]
     Indication: ANAEMIA
     Dosage: 20000 IU, Q2WK
     Route: 058
     Dates: start: 20090922
  9. PLAVIX [Concomitant]
     Indication: CORONARY ARTERY DISEASE
     Dosage: 75 MG, UNK
     Route: 048
     Dates: start: 20000101
  10. ISOSORBIDE MONONITRATE [Concomitant]
     Indication: CARDIAC FAILURE CHRONIC
     Route: 048

REACTIONS (4)
  - FALL [None]
  - HIP FRACTURE [None]
  - ASTHENIA [None]
  - INJECTION SITE PAIN [None]
